FAERS Safety Report 5245486-8 (Version None)
Quarter: 2007Q1

REPORT INFORMATION
  Report Type: 
  Country: None (occurrence: None)
  Receive Date: 20070223
  Receipt Date: 20070213
  Transmission Date: 20070707
  Serious: Yes (Other)
  Sender: FDA-Public Use
  Company Number: US-PFIZER INC-2006018726

PATIENT
  Sex: Male
  Weight: 95.3 kg

DRUGS (1)
  1. BEXTRA [Suspect]
     Indication: TENDONITIS
     Route: 048
     Dates: start: 20031218, end: 20040102

REACTIONS (3)
  - RASH [None]
  - SCAR [None]
  - SKIN REACTION [None]
